FAERS Safety Report 9113321 (Version 1)
Quarter: 2013Q1

REPORT INFORMATION
  Report Type: Spontaneous
  Country: AU (occurrence: AU)
  Receive Date: 20130211
  Receipt Date: 20130211
  Transmission Date: 20140127
  Serious: Yes (Death)
  Sender: FDA-Public Use
  Company Number: AU-CELGENEUS-008-20785-13020223

PATIENT
  Age: 61 Year
  Sex: 0

DRUGS (3)
  1. THALIDOMIDE [Suspect]
     Indication: PLASMA CELL MYELOMA
     Route: 048
  2. DEXAMETHASONE [Concomitant]
     Indication: PLASMA CELL MYELOMA
     Route: 037
  3. HYDROCORTISONE [Concomitant]
     Indication: PLASMA CELL MYELOMA
     Route: 037

REACTIONS (2)
  - Plasma cell myeloma [Fatal]
  - Multi-organ failure [Fatal]
